FAERS Safety Report 18405502 (Version 1)
Quarter: 2020Q4

REPORT INFORMATION
  Report Type: Spontaneous
  Country: US (occurrence: US)
  Receive Date: 20201020
  Receipt Date: 20201020
  Transmission Date: 20210114
  Serious: Yes (Other)
  Sender: FDA-Public Use
  Company Number: US-TEVA-2020-US-1840181

PATIENT

DRUGS (8)
  1. METOPROLOL. [Concomitant]
     Active Substance: METOPROLOL
     Dosage: 100 MILLIGRAM DAILY; 50 MG TWICE DAY, EVERY 12 HOURS
  2. AMIODARONE [Concomitant]
     Active Substance: AMIODARONE
  3. FLUOROURACIL. [Suspect]
     Active Substance: FLUOROURACIL
     Indication: OESOPHAGEAL CARCINOMA
     Route: 065
     Dates: start: 202006
  4. OXALIPLATIN. [Suspect]
     Active Substance: OXALIPLATIN
     Indication: OESOPHAGEAL CARCINOMA
     Route: 065
     Dates: start: 202006
  5. LEUCOVORIN. [Suspect]
     Active Substance: LEUCOVORIN
     Indication: OESOPHAGEAL CARCINOMA
     Route: 065
     Dates: start: 202006
  6. ELIQUIS [Suspect]
     Active Substance: APIXABAN
     Indication: ATRIAL FIBRILLATION
     Dosage: REDUCED TO 2.5 MG TWICE A DAY TEMPORARILY
     Route: 065
  7. ELIQUIS [Suspect]
     Active Substance: APIXABAN
     Dosage: REDUCED TO 2.5 MG TWICE A DAY TEMPORARILY
     Route: 065
  8. PANTOPRAZOLE [Concomitant]
     Active Substance: PANTOPRAZOLE

REACTIONS (4)
  - Myelosuppression [Unknown]
  - Atrial fibrillation [Unknown]
  - Thrombocytopenia [Recovering/Resolving]
  - Haemorrhage [Recovered/Resolved]
